FAERS Safety Report 15634733 (Version 3)
Quarter: 2019Q1

REPORT INFORMATION
  Report Type: Spontaneous
  Country: HR (occurrence: HR)
  Receive Date: 20181119
  Receipt Date: 20190107
  Transmission Date: 20190417
  Serious: Yes (Life-Threatening, Hospitalization, Other)
  Sender: FDA-Public Use
  Company Number: PHHY2018HR154991

PATIENT
  Age: 61 Year
  Sex: Male
  Weight: 101 kg

DRUGS (5)
  1. LEKADOL [Concomitant]
     Active Substance: ACETAMINOPHEN
     Indication: ANALGESIC THERAPY
     Dosage: 1000 MG, PRN
     Route: 048
  2. AMONEX [Concomitant]
     Indication: HYPERTENSION
     Dosage: 10 MG, UNK
     Route: 048
  3. AFINITOR [Suspect]
     Active Substance: EVEROLIMUS
     Indication: METASTATIC RENAL CELL CARCINOMA
     Dosage: 10 MG, UNK
     Route: 048
     Dates: start: 20170321, end: 20170911
  4. BRUFEN [Concomitant]
     Active Substance: IBUPROFEN
     Indication: ANALGESIC THERAPY
     Dosage: 600 MG, PRN
     Route: 048
  5. NORMABEL [Concomitant]
     Active Substance: DIAZEPAM
     Indication: ANXIETY
     Dosage: 5 MG, PRN
     Route: 048

REACTIONS (19)
  - Adrenal adenoma [Unknown]
  - C-reactive protein increased [Unknown]
  - Renal impairment [Unknown]
  - Decreased appetite [Unknown]
  - Pleural effusion [Unknown]
  - Productive cough [Unknown]
  - Anamnestic reaction [Unknown]
  - Weight decreased [Unknown]
  - Respiratory tract infection [Unknown]
  - Lung infiltration [Unknown]
  - Malaise [Unknown]
  - Skin exfoliation [Unknown]
  - Abnormal faeces [Unknown]
  - Asthenia [Unknown]
  - Pyrexia [Unknown]
  - Body temperature increased [Unknown]
  - Blister [Unknown]
  - Pulmonary mycosis [Recovered/Resolved with Sequelae]
  - Pneumonia [Recovered/Resolved with Sequelae]

NARRATIVE: CASE EVENT DATE: 20170909
